FAERS Safety Report 15202387 (Version 1)
Quarter: 2018Q3

REPORT INFORMATION
  Report Type: Spontaneous
  Country: US (occurrence: US)
  Receive Date: 20180726
  Receipt Date: 20180726
  Transmission Date: 20181010
  Serious: No
  Sender: FDA-Public Use
  Company Number: US-BAYER-2018-134917

PATIENT
  Age: 74 Year
  Sex: Female
  Weight: 64 kg

DRUGS (4)
  1. FISH OIL [Concomitant]
     Active Substance: FISH OIL
     Dosage: UNK
  2. ALEVE [Suspect]
     Active Substance: NAPROXEN SODIUM
     Indication: PAIN
     Dosage: 2 DF, QD
     Route: 048
  3. GLUCOSAMINE [GLUCOSAMINE] [Concomitant]
     Dosage: UNK
  4. YEAST [YEAST] [Concomitant]

REACTIONS (2)
  - Product prescribing issue [Unknown]
  - Incorrect dose administered [Unknown]
